FAERS Safety Report 9167823 (Version 1)
Quarter: 2013Q1

REPORT INFORMATION
  Report Type: Spontaneous
  Country: US (occurrence: None)
  Receive Date: 20130314
  Receipt Date: 20130314
  Transmission Date: 20140127
  Serious: Yes (Death)
  Sender: FDA-Public Use
  Company Number: DIAZ20130002

PATIENT
  Sex: Female

DRUGS (2)
  1. DIAZEPAM (DIAZEPAM) [Suspect]
     Indication: PRODUCT USED FOR UNKNOWN INDICATION
  2. Q-PAP TABLETS 325MG (PARACETAMOL) (TABLETS) [Suspect]
     Indication: PRODUCT USED FOR UNKNOWN INDICATION

REACTIONS (2)
  - Toxicity to various agents [None]
  - Intentional overdose [None]
